FAERS Safety Report 4460426-7 (Version None)
Quarter: 2004Q3

REPORT INFORMATION
  Report Type: 
  Country: None (occurrence: None)
  Receive Date: 20040928
  Receipt Date: 20040624
  Transmission Date: 20050211
  Serious: No
  Sender: FDA-Public Use
  Company Number: US-GLAXOSMITHKLINE-A0515863A

PATIENT
  Age: 54 Year
  Sex: Female

DRUGS (5)
  1. SEREVENT [Suspect]
     Indication: ASTHMA
     Dosage: 1PUFF TWICE PER DAY
     Route: 055
     Dates: start: 20040101
  2. TILADE [Concomitant]
  3. TYLENOL [Concomitant]
  4. VICODIN [Concomitant]
  5. DILAUDID [Concomitant]

REACTIONS (10)
  - CHEST DISCOMFORT [None]
  - COUGH [None]
  - DYSPHONIA [None]
  - DYSPNOEA [None]
  - FIBROMYALGIA [None]
  - GINGIVAL PAIN [None]
  - HEADACHE [None]
  - MYALGIA [None]
  - NAUSEA [None]
  - SENSITIVITY OF TEETH [None]
